FAERS Safety Report 7900138-8 (Version None)
Quarter: 2011Q4

REPORT INFORMATION
  Report Type: 
  Country: None (occurrence: None)
  Receive Date: 20111108
  Receipt Date: 20111026
  Transmission Date: 20120403
  Serious: No
  Sender: FDA-Public Use
  Company Number: US-BIOGENIDEC-2011BI041194

PATIENT
  Age: 38 Year
  Sex: Female

DRUGS (6)
  1. WELLBUTRIN [Concomitant]
     Indication: PROPHYLAXIS
  2. TYSABRI [Suspect]
     Indication: MULTIPLE SCLEROSIS
     Route: 042
     Dates: start: 20110916
  3. TYSABRI [Suspect]
     Route: 042
     Dates: start: 20110627, end: 20110627
  4. VYVANSE [Concomitant]
     Indication: ATTENTION DEFICIT/HYPERACTIVITY DISORDER
  5. NUVIGIL [Concomitant]
     Indication: ENERGY INCREASED
  6. VALIUM [Concomitant]
     Indication: STRESS

REACTIONS (3)
  - FATIGUE [None]
  - PAIN [None]
  - INFLUENZA [None]
